FAERS Safety Report 7807513-0 (Version None)
Quarter: 2011Q4

REPORT INFORMATION
  Report Type: 
  Country: None (occurrence: None)
  Receive Date: 20111011
  Receipt Date: 20111005
  Transmission Date: 20120403
  Serious: Yes (Hospitalization)
  Sender: FDA-Public Use
  Company Number: US-GLAXOSMITHKLINE-A0879593A

PATIENT
  Age: 58 Year
  Sex: Female
  Weight: 113.6 kg

DRUGS (5)
  1. AVANDIA [Suspect]
     Indication: TYPE 2 DIABETES MELLITUS
     Dosage: 4MG PER DAY
     Route: 048
     Dates: start: 20030609, end: 20070101
  2. PROPYLTHIOURACIL [Concomitant]
  3. METFORMIN HYDROCHLORIDE [Concomitant]
  4. VYTORIN [Concomitant]
  5. ZESTRIL [Concomitant]

REACTIONS (3)
  - PALPITATIONS [None]
  - MYOCARDIAL INFARCTION [None]
  - CORONARY ARTERY DISEASE [None]
